FAERS Safety Report 12798235 (Version 2)
Quarter: 2017Q1

REPORT INFORMATION
  Report Type: Spontaneous
  Country: AU (occurrence: AU)
  Receive Date: 20160930
  Receipt Date: 20170310
  Transmission Date: 20170428
  Serious: Yes (Other)
  Sender: FDA-Public Use
  Company Number: AU-009507513-1609AUS003262

PATIENT
  Age: 6 Year
  Sex: Male

DRUGS (1)
  1. SINGULAIR [Suspect]
     Active Substance: MONTELUKAST SODIUM
     Indication: ASTHMA
     Dosage: UNK
     Route: 048

REACTIONS (6)
  - Self esteem decreased [Recovering/Resolving]
  - Aggression [Recovering/Resolving]
  - Suicidal ideation [Recovering/Resolving]
  - Major depression [Recovering/Resolving]
  - Psychotic behaviour [Recovering/Resolving]
  - Fear [Recovering/Resolving]
